FAERS Safety Report 9689747 (Version 2)
Quarter: 2014Q1

REPORT INFORMATION
  Report Type: Report from Study
  Country: JP (occurrence: JP)
  Receive Date: 20131115
  Receipt Date: 20140328
  Transmission Date: 20141002
  Serious: Yes (Other)
  Sender: FDA-Public Use
  Company Number: JP-JNJFOC-20131104952

PATIENT
  Age: 59 Year
  Sex: Male
  Weight: 60 kg

DRUGS (4)
  1. STELARA [Suspect]
     Indication: PSORIASIS
     Route: 058
     Dates: start: 20130423, end: 20130423
  2. STELARA [Suspect]
     Indication: PSORIASIS
     Route: 058
     Dates: start: 20130326, end: 20130326
  3. DIACORT [Concomitant]
     Indication: PSORIASIS
     Route: 061
     Dates: start: 20111125, end: 201305
  4. LOCOID [Concomitant]
     Indication: PSORIASIS
     Route: 061
     Dates: start: 20111118, end: 201304

REACTIONS (1)
  - Drug-induced liver injury [Not Recovered/Not Resolved]
